FAERS Safety Report 5863967-0 (Version None)
Quarter: 2008Q3

REPORT INFORMATION
  Report Type: 
  Country: None (occurrence: None)
  Receive Date: 20080829
  Receipt Date: 20080821
  Transmission Date: 20090109
  Serious: Yes (Other)
  Sender: FDA-Public Use
  Company Number: PHHY2008AT18788

PATIENT
  Sex: Female

DRUGS (1)
  1. ACLASTA [Suspect]

REACTIONS (4)
  - ARTHRALGIA [None]
  - BONE PAIN [None]
  - JOINT SWELLING [None]
  - POLYARTHRITIS [None]
